FAERS Safety Report 18559247 (Version 1)
Quarter: 2020Q4

REPORT INFORMATION
  Report Type: Spontaneous
  Country: CA (occurrence: CA)
  Receive Date: 20201130
  Receipt Date: 20201130
  Transmission Date: 20210114
  Serious: Yes (Other)
  Sender: FDA-Public Use
  Company Number: CA-009507513-2011CAN015900

PATIENT

DRUGS (2)
  1. MAVYRET [Concomitant]
     Active Substance: GLECAPREVIR\PIBRENTASVIR
     Dosage: UNKNOWN
     Route: 065
  2. EZETROL [Suspect]
     Active Substance: EZETIMIBE
     Indication: ANTIVIRAL PROPHYLAXIS
     Dosage: DOSE: 10.0 MILLIGRAM, FREQUENCY: 1 EVERY 1 DAYS (QD)
     Route: 065

REACTIONS (2)
  - Alanine aminotransferase increased [Unknown]
  - Product use in unapproved indication [Unknown]
